FAERS Safety Report 12491805 (Version 1)
Quarter: 2016Q2

REPORT INFORMATION
  Report Type: Spontaneous
  Country: US (occurrence: None)
  Receive Date: 20160622
  Receipt Date: 20160622
  Transmission Date: 20160815
  Serious: No
  Sender: FDA-Public Use
  Company Number: None

PATIENT
  Age: 83 Year
  Sex: Female
  Weight: 65.77 kg

DRUGS (8)
  1. WARFARIN [Concomitant]
     Active Substance: WARFARIN
  2. FISH OIL [Concomitant]
     Active Substance: FISH OIL
  3. LISINOPRIL. [Concomitant]
     Active Substance: LISINOPRIL
  4. MULTI VIT [Concomitant]
  5. AMOX/CLAV [Suspect]
     Active Substance: AMOXICILLIN\CLAVULANATE POTASSIUM
     Indication: SINUSITIS
     Route: 048
     Dates: start: 20160416, end: 20160418
  6. GLUCOSAMINE [Concomitant]
     Active Substance: GLUCOSAMINE
  7. MATOPROLOL [Concomitant]
  8. AMLODOPINE [Concomitant]
     Active Substance: AMLODIPINE BESYLATE

REACTIONS (3)
  - Gait disturbance [None]
  - Mental impairment [None]
  - Nausea [None]

NARRATIVE: CASE EVENT DATE: 20160416
